FAERS Safety Report 4430555-2 (Version None)
Quarter: 2004Q3

REPORT INFORMATION
  Report Type: 
  Country: None (occurrence: None)
  Receive Date: 20040818
  Receipt Date: 20040810
  Transmission Date: 20050211
  Serious: Yes (Death)
  Sender: FDA-Public Use
  Company Number: 2004-08-0507

PATIENT
  Age: 70 Year
  Sex: Female
  Weight: 42 kg

DRUGS (1)
  1. INTRON A [Suspect]
     Indication: CHRONIC MYELOID LEUKAEMIA
     Dosage: 3 MIU QD-TIW INTRAMUSCULAR
     Route: 030
     Dates: start: 19960203, end: 20021231

REACTIONS (2)
  - AMYLOIDOSIS [None]
  - RENAL FAILURE CHRONIC [None]
